FAERS Safety Report 13369014 (Version 1)
Quarter: 2017Q1

REPORT INFORMATION
  Report Type: Spontaneous
  Country: US (occurrence: US)
  Receive Date: 20170323
  Receipt Date: 20170323
  Transmission Date: 20170429
  Serious: Yes (Disabling)
  Sender: FDA-Public Use
  Company Number: None

PATIENT
  Age: 53 Year
  Sex: Male
  Weight: 68.04 kg

DRUGS (7)
  1. GENSING [Concomitant]
  2. ASHWAGHANDO ROOT [Concomitant]
  3. GLUCOSAMINE CHONDROITIN [Concomitant]
     Active Substance: CHONDROITIN SULFATE (BOVINE)\GLUCOSAMINE HYDROCHLORIDE
  4. MULTIVITAMIN [Concomitant]
     Active Substance: VITAMINS
  5. FISH OIL [Concomitant]
     Active Substance: FISH OIL
  6. VITAMIN D [Concomitant]
     Active Substance: CHOLECALCIFEROL
  7. BESIVANCE [Suspect]
     Active Substance: BESIFLOXACIN
     Indication: EYE INFECTION
     Dosage: QUANITY - ONE DROP 3X A DAY, THEN 2X A DAY, THEN 1X A DAY?FREQUENCY - 3,2,1?6 MG/ML
     Route: 047
     Dates: start: 20170131, end: 20170303

REACTIONS (4)
  - Burning sensation [None]
  - Fear [None]
  - Vision blurred [None]
  - Impaired work ability [None]

NARRATIVE: CASE EVENT DATE: 201701
